FAERS Safety Report 25042411 (Version 4)
Quarter: 2025Q1

REPORT INFORMATION
  Report Type: Spontaneous
  Country: US (occurrence: US)
  Receive Date: 20250305
  Receipt Date: 20250311
  Transmission Date: 20250409
  Serious: Yes (Hospitalization)
  Sender: IPSEN BIOPHARMACEUTICALS, INC.
  Company Number: US-IPSEN Group, Research and Development-2025-04835

PATIENT
  Age: 60 Year
  Sex: Female

DRUGS (1)
  1. IQIRVO [Suspect]
     Active Substance: ELAFIBRANOR
     Indication: Primary biliary cholangitis
     Route: 048

REACTIONS (3)
  - Eye injury [Unknown]
  - Fall [Unknown]
  - Product dose omission issue [Unknown]
